FAERS Safety Report 17610192 (Version 1)
Quarter: 2020Q1

REPORT INFORMATION
  Report Type: Spontaneous
  Country: US (occurrence: US)
  Receive Date: 20200331
  Receipt Date: 20200331
  Transmission Date: 20200409
  Serious: Yes (Hospitalization)
  Sender: FDA-Public Use
  Company Number: None

PATIENT
  Age: 65 Year
  Sex: Female

DRUGS (14)
  1. FOLIC ACID. [Concomitant]
     Active Substance: FOLIC ACID
  2. PROLIA [Concomitant]
     Active Substance: DENOSUMAB
  3. ANASTROZOLE. [Concomitant]
     Active Substance: ANASTROZOLE
  4. ALBUTEROL. [Concomitant]
     Active Substance: ALBUTEROL
  5. DILTIAZEM. [Concomitant]
     Active Substance: DILTIAZEM
  6. FLOR-CON M20 [Concomitant]
  7. OMEPRAZOLE. [Concomitant]
     Active Substance: OMEPRAZOLE
  8. ALLOPURINOL. [Concomitant]
     Active Substance: ALLOPURINOL
  9. PREDNISONE. [Concomitant]
     Active Substance: PREDNISONE
  10. TIZANIDINE. [Concomitant]
     Active Substance: TIZANIDINE
  11. ESBRIET [Suspect]
     Active Substance: PIRFENIDONE
     Indication: IDIOPATHIC PULMONARY FIBROSIS
     Route: 048
     Dates: start: 20161116
  12. SIMVASTATIN. [Concomitant]
     Active Substance: SIMVASTATIN
  13. TORSEMIDE. [Concomitant]
     Active Substance: TORSEMIDE
  14. ORPHENADRINE [Concomitant]
     Active Substance: ORPHENADRINE

REACTIONS (3)
  - Urinary tract infection [None]
  - Fatigue [None]
  - Pneumonia [None]

NARRATIVE: CASE EVENT DATE: 202003
